FAERS Safety Report 13428798 (Version 2)
Quarter: 2017Q2

REPORT INFORMATION
  Report Type: Spontaneous
  Country: US (occurrence: US)
  Receive Date: 20170411
  Receipt Date: 20170427
  Transmission Date: 20170830
  Serious: Yes (Other)
  Sender: FDA-Public Use
  Company Number: US-ALLERGAN-1713907US

PATIENT
  Age: 59 Year
  Sex: Female

DRUGS (4)
  1. VISTARIL [Concomitant]
     Active Substance: HYDROXYZINE PAMOATE
     Dosage: UNK
     Route: 065
  2. SAPHRIS [Suspect]
     Active Substance: ASENAPINE MALEATE
     Indication: BIPOLAR DISORDER
     Dosage: 5 MG, UNK
  3. TRAZODONE [Concomitant]
     Active Substance: TRAZODONE HYDROCHLORIDE
     Indication: SLEEP DISORDER
     Route: 065
  4. SYNTHROID [Concomitant]
     Active Substance: LEVOTHYROXINE SODIUM
     Indication: THYROID DISORDER
     Route: 065

REACTIONS (1)
  - Renal disorder [Not Recovered/Not Resolved]
